FAERS Safety Report 7555417-3 (Version None)
Quarter: 2011Q2

REPORT INFORMATION
  Report Type: 
  Country: None (occurrence: None)
  Receive Date: 20110617
  Receipt Date: 20110602
  Transmission Date: 20111010
  Serious: No
  Sender: FDA-Public Use
  Company Number: US-B.I. PHARMACEUTICALS,INC./RIDGEFIELD-2011-BP-07242BP

PATIENT
  Sex: Female
  Weight: 62.14 kg

DRUGS (9)
  1. PRADAXA [Suspect]
     Indication: ATRIAL FIBRILLATION
     Dosage: 150 MG
     Route: 048
     Dates: start: 20110217, end: 20110222
  2. METOPROLOL TARTRATE [Concomitant]
     Indication: HYPERTENSION
     Dosage: 40 MG
  3. ESTRIOL [Concomitant]
  4. PRADAXA [Suspect]
     Indication: ANTICOAGULANT THERAPY
  5. AMLODIPOINE [Concomitant]
     Indication: HYPERTENSION
     Dosage: 5 MG
  6. PRADAXA [Suspect]
     Indication: CEREBROVASCULAR ACCIDENT PROPHYLAXIS
  7. SPIRIONOLACTONE [Concomitant]
     Indication: HYPERTENSION
     Dosage: 25 MG
  8. LISINOPRIL [Concomitant]
     Indication: RAYNAUD'S PHENOMENON
     Dosage: 5 MG
  9. MULTIPLE ANTIHYPERTENSIVES [Concomitant]
     Indication: HYPERTENSION

REACTIONS (4)
  - HAEMORRHOIDS [None]
  - HAEMATOCHEZIA [None]
  - DIVERTICULUM [None]
  - RECTAL HAEMORRHAGE [None]
